FAERS Safety Report 13297154 (Version 1)
Quarter: 2017Q1

REPORT INFORMATION
  Report Type: Report from Study
  Country: BR (occurrence: BR)
  Receive Date: 20170306
  Receipt Date: 20170306
  Transmission Date: 20170428
  Serious: Yes (Hospitalization)
  Sender: FDA-Public Use
  Company Number: PHHY2017BR033095

PATIENT
  Sex: Female
  Weight: 50 kg

DRUGS (1)
  1. EXELON PATCH [Suspect]
     Active Substance: RIVASTIGMINE
     Indication: DEMENTIA ALZHEIMER^S TYPE
     Dosage: 9.5 MG, QD PATCH 10 (CM2)
     Route: 062

REACTIONS (10)
  - Weight decreased [Recovering/Resolving]
  - Asthenia [Unknown]
  - Malaise [Unknown]
  - Frustration tolerance decreased [Unknown]
  - Secretion discharge [Recovering/Resolving]
  - Apnoea [Not Recovered/Not Resolved]
  - Cachexia [Unknown]
  - Sedation [Unknown]
  - Pneumonia [Recovering/Resolving]
  - Dyspnoea [Unknown]
